FAERS Safety Report 8462031-4 (Version None)
Quarter: 2012Q2

REPORT INFORMATION
  Report Type: 
  Country: None (occurrence: None)
  Receive Date: 20120618
  Receipt Date: 20120601
  Transmission Date: 20120825
  Serious: Yes (Hospitalization, Other)
  Sender: FDA-Public Use
  Company Number: 2012MA006848

PATIENT
  Age: 67 Year
  Sex: Male

DRUGS (8)
  1. DONEPEZIL HCL [Concomitant]
  2. DOMPERIDONE [Concomitant]
  3. BENSERAZIDE [Concomitant]
  4. SIMVASTATIN [Concomitant]
  5. VILDAGLIPTIN (NO PREF. NAME) [Suspect]
     Indication: TYPE 2 DIABETES MELLITUS
     Dosage: 100 MG;QD;PO
     Route: 048
  6. METFORMIN HYDROCHLORIDE [Suspect]
     Indication: TYPE 2 DIABETES MELLITUS
     Dosage: 1700 MG;QD;PO
     Route: 048
  7. LEVODOPA [Concomitant]
  8. CLOPIDOGREL [Concomitant]

REACTIONS (1)
  - PEMPHIGOID [None]
